FAERS Safety Report 4917814-1 (Version None)
Quarter: 2006Q1

REPORT INFORMATION
  Report Type: 
  Country: None (occurrence: None)
  Receive Date: 20060221
  Receipt Date: 20060215
  Transmission Date: 20060701
  Serious: Yes (Life-Threatening)
  Sender: FDA-Public Use
  Company Number: FR-AVENTIS-200610620FR

PATIENT
  Age: 75 Year
  Sex: Female

DRUGS (3)
  1. AMAREL [Suspect]
     Indication: DIABETES MELLITUS
     Dosage: DOSE UNIT: UNITS
     Route: 048
     Dates: end: 20050923
  2. DEROXAT [Concomitant]
     Indication: DEPRESSION
     Route: 048
     Dates: end: 20050923
  3. GLUCOR [Concomitant]
     Indication: DIABETES MELLITUS
     Route: 048
     Dates: end: 20050923

REACTIONS (1)
  - HYPOGLYCAEMIC COMA [None]
